FAERS Safety Report 8012828-X (Version None)
Quarter: 2011Q4

REPORT INFORMATION
  Report Type: 
  Country: None (occurrence: None)
  Receive Date: 20111229
  Receipt Date: 20111222
  Transmission Date: 20120403
  Serious: Yes (Death, Hospitalization, Other)
  Sender: FDA-Public Use
  Company Number: DK-BRISTOL-MYERS SQUIBB COMPANY-15697469

PATIENT
  Age: 46 Year
  Sex: Female

DRUGS (2)
  1. ETOPOSIDE [Suspect]
     Indication: SMALL CELL LUNG CANCER STAGE UNSPECIFIED
     Dosage: DOSE REDUCED. CYCLICAL. 120MG/M2DAY1-3. CONCENTRATE FOR SOLUTION FOR INFUSION.
  2. CARBOPLATIN [Suspect]
     Indication: SMALL CELL LUNG CANCER STAGE UNSPECIFIED
     Dosage: 1DF=5AUC.DOSE REDUCED. CYCLICAL.

REACTIONS (22)
  - ABDOMINAL PAIN [None]
  - NEUTROPENIA [None]
  - NEOPLASM MALIGNANT [None]
  - LOCAL SWELLING [None]
  - GASTROINTESTINAL NECROSIS [None]
  - SUPERIOR VENA CAVA SYNDROME [None]
  - BLOOD SODIUM DECREASED [None]
  - ASCITES [None]
  - NEUTROPENIC COLITIS [None]
  - INFLAMMATION [None]
  - KLEBSIELLA TEST POSITIVE [None]
  - DIARRHOEA [None]
  - GENERAL PHYSICAL HEALTH DETERIORATION [None]
  - PYREXIA [None]
  - VOMITING [None]
  - OEDEMA [None]
  - LEUKOPENIA [None]
  - GASTROINTESTINAL SOUNDS ABNORMAL [None]
  - TACHYCARDIA [None]
  - THROMBOCYTOPENIA [None]
  - ESCHERICHIA TEST POSITIVE [None]
  - HYPOTENSION [None]
